FAERS Safety Report 23404755 (Version 1)
Quarter: 2024Q1

REPORT INFORMATION
  Report Type: Spontaneous
  Country: US (occurrence: US)
  Receive Date: 20240116
  Receipt Date: 20240116
  Transmission Date: 20240410
  Serious: Yes (Life-Threatening, Hospitalization, Other)
  Sender: FDA-Public Use
  Company Number: US-SANDOZ-SDZ2024US003420

PATIENT
  Age: 32 Year
  Sex: Female

DRUGS (4)
  1. HEPARIN [Suspect]
     Active Substance: HEPARIN SODIUM
     Indication: Haemodynamic instability
     Dosage: UNK
     Route: 065
  2. ARGATROBAN [Concomitant]
     Active Substance: ARGATROBAN
     Indication: Thrombocytopenia
     Dosage: 10 MG
     Route: 040
  3. ARGATROBAN [Concomitant]
     Active Substance: ARGATROBAN
     Dosage: 2 MCG/KG/H DRIP
     Route: 041
  4. DANAPAROID [Concomitant]
     Active Substance: DANAPAROID
     Indication: Product used for unknown indication
     Dosage: UNK
     Route: 065

REACTIONS (1)
  - Heparin-induced thrombocytopenia [Unknown]
